FAERS Safety Report 6565883-8 (Version None)
Quarter: 2010Q1

REPORT INFORMATION
  Report Type: 
  Country: None (occurrence: None)
  Receive Date: 20100127
  Receipt Date: 20091203
  Transmission Date: 20100710
  Serious: Yes (Death)
  Sender: FDA-Public Use
  Company Number: 2009110612

PATIENT
  Age: 17 Year
  Sex: Female

DRUGS (1)
  1. VOLUVEN [Suspect]
     Indication: SURGERY
     Dosage: 500 ML (500 ML), INTRAVENOUS BOLUS
     Route: 040

REACTIONS (2)
  - HYPERKALAEMIA [None]
  - TACHYARRHYTHMIA [None]
